FAERS Safety Report 5821481-2 (Version None)
Quarter: 2008Q3

REPORT INFORMATION
  Report Type: 
  Country: None (occurrence: None)
  Receive Date: 20080724
  Receipt Date: 20080723
  Transmission Date: 20090109
  Serious: Yes (Other)
  Sender: FDA-Public Use
  Company Number: B0530223A

PATIENT
  Age: 38 Year
  Sex: Female

DRUGS (4)
  1. PAXIL [Suspect]
     Indication: DEPRESSION
     Dosage: 10MG PER DAY
     Route: 048
     Dates: start: 20080525, end: 20080607
  2. DEPAS [Suspect]
     Indication: INSOMNIA
     Dosage: 1MG PER DAY
     Route: 048
     Dates: start: 20080525, end: 20080607
  3. AMOXAPINE [Suspect]
     Indication: DEPRESSION
     Dosage: 25MG THREE TIMES PER DAY
     Route: 048
     Dates: start: 20080525, end: 20080607
  4. RIZE [Suspect]
     Indication: DEPRESSION
     Dosage: 5MG THREE TIMES PER DAY
     Route: 048
     Dates: start: 20080525, end: 20080607

REACTIONS (6)
  - DRUG ERUPTION [None]
  - ERYTHEMA [None]
  - ERYTHEMA MULTIFORME [None]
  - LUPUS-LIKE SYNDROME [None]
  - PRURITUS [None]
  - SYSTEMIC LUPUS ERYTHEMATOSUS [None]
